FAERS Safety Report 8990812 (Version 1)
Quarter: 2012Q4

REPORT INFORMATION
  Report Type: Spontaneous
  Country: US (occurrence: None)
  Receive Date: 20121226
  Receipt Date: 20121226
  Transmission Date: 20130627
  Serious: Yes (Disabling, Other)
  Sender: FDA-Public Use
  Company Number: None

PATIENT
  Sex: Female
  Weight: 73.94 kg

DRUGS (1)
  1. MIRAPEX [Suspect]
     Indication: RESTLESS LEG SYNDROME
     Dosage: 1mg 3 times day po
     Route: 048

REACTIONS (3)
  - Obsessive-compulsive disorder [None]
  - Hyperphagia [None]
  - Weight increased [None]
